FAERS Safety Report 24173677 (Version 1)
Quarter: 2024Q3

REPORT INFORMATION
  Report Type: Spontaneous
  Country: US (occurrence: US)
  Receive Date: 20240805
  Receipt Date: 20240805
  Transmission Date: 20241017
  Serious: Yes (Death, Hospitalization, Other)
  Sender: MERCK
  Company Number: US-009507513-2407USA015197

PATIENT
  Sex: Male

DRUGS (2)
  1. KEYTRUDA [Suspect]
     Active Substance: PEMBROLIZUMAB
     Indication: Malignant melanoma stage III
     Dosage: 200 MILLIGRAM EVERY 21 DAYS
     Route: 042
  2. GINKGO [Concomitant]
     Active Substance: GINKGO
     Dosage: UNK

REACTIONS (3)
  - Death [Fatal]
  - Asthenia [Unknown]
  - Blood creatine phosphokinase increased [Unknown]
